FAERS Safety Report 5654601-3 (Version None)
Quarter: 2008Q1

REPORT INFORMATION
  Report Type: 
  Country: None (occurrence: None)
  Receive Date: 20080307
  Receipt Date: 20080226
  Transmission Date: 20080703
  Serious: Yes (Other)
  Sender: FDA-Public Use
  Company Number: US-JNJFOC-20080206331

PATIENT
  Age: 40 Year
  Sex: Male

DRUGS (9)
  1. INTELENCE [Suspect]
     Route: 048
  2. INTELENCE [Suspect]
     Indication: DRUG USE FOR UNKNOWN INDICATION
     Route: 048
  3. TRUVADA [Concomitant]
     Route: 065
  4. ISENTRESS [Concomitant]
     Route: 065
  5. SPIRONOLACTONE [Concomitant]
     Route: 065
  6. VITAMIN K [Concomitant]
     Route: 065
  7. DAPSONE [Concomitant]
     Route: 065
  8. ZITHROMAX [Concomitant]
     Route: 065
  9. LAMIVUDINE [Concomitant]
     Route: 065

REACTIONS (2)
  - BLOOD AMYLASE INCREASED [None]
  - LIPASE INCREASED [None]
